FAERS Safety Report 5710519-9 (Version None)
Quarter: 2008Q2

REPORT INFORMATION
  Report Type: 
  Country: None (occurrence: None)
  Receive Date: 20080415
  Receipt Date: 20080409
  Transmission Date: 20081010
  Serious: Yes (Hospitalization)
  Sender: FDA-Public Use
  Company Number: 2007SP019974

PATIENT
  Age: 51 Year
  Sex: Female

DRUGS (8)
  1. PEG-INTRON (PEGINTERFERON ALFA-2B) [Suspect]
     Indication: HEPATITIS C
     Dosage: SC
     Route: 058
     Dates: start: 20070623, end: 20070706
  2. RIBAVIRIN [Suspect]
     Indication: HEPATITIS C
     Dosage: PO
     Route: 048
     Dates: start: 20070623, end: 20070706
  3. ALPRAZOLAM [Concomitant]
  4. AMLODIPINE [Concomitant]
  5. OXYCODONE HCL [Concomitant]
  6. VARENICLINE [Concomitant]
  7. PROCHLORPERAZINE [Concomitant]
  8. PRILOSEC [Concomitant]

REACTIONS (12)
  - ABDOMINAL DISCOMFORT [None]
  - ABDOMINAL PAIN UPPER [None]
  - ADRENAL ADENOMA [None]
  - ANAEMIA [None]
  - BLOOD ALDOSTERONE DECREASED [None]
  - CHEST PAIN [None]
  - NAUSEA [None]
  - PRURITUS GENERALISED [None]
  - RENIN DECREASED [None]
  - THERAPEUTIC RESPONSE DECREASED [None]
  - VOMITING [None]
  - WEIGHT DECREASED [None]
